FAERS Safety Report 5093507-8 (Version None)
Quarter: 2006Q3

REPORT INFORMATION
  Report Type: 
  Country: None (occurrence: None)
  Receive Date: 20060829
  Receipt Date: 20060816
  Transmission Date: 20061208
  Serious: Yes (Other)
  Sender: FDA-Public Use
  Company Number: 2006069070

PATIENT
  Age: 86 Year
  Sex: Male
  Weight: 60.782 kg

DRUGS (1)
  1. XALATAN [Suspect]
     Indication: GLAUCOMA
     Dosage: 2 DROP (1 DROP, 1 IN 1 D), OPHTHALMIC
     Route: 047

REACTIONS (5)
  - BLINDNESS UNILATERAL [None]
  - DRUG DOSE OMISSION [None]
  - HYPOACUSIS [None]
  - PHARMACEUTICAL PRODUCT COMPLAINT [None]
  - VISUAL ACUITY REDUCED [None]
